FAERS Safety Report 22266589 (Version 1)
Quarter: 2023Q2

REPORT INFORMATION
  Report Type: Spontaneous
  Country: IE (occurrence: IE)
  Receive Date: 20230428
  Receipt Date: 20230428
  Transmission Date: 20230721
  Serious: Yes (Hospitalization)
  Sender: FDA-Public Use
  Company Number: None

PATIENT
  Age: 85 Year
  Sex: Female

DRUGS (16)
  1. CLARITHROMYCIN [Suspect]
     Active Substance: CLARITHROMYCIN
     Indication: Lower respiratory tract infection
     Dosage: 500 MG, FREQUENCY TIME: 12 HOURS
     Route: 065
  2. SPIRONOLACTONE (G) [Concomitant]
     Indication: Product used for unknown indication
     Dosage: 50 MG, FREQUENCY TIME: 1 DAY
     Route: 065
  3. RIVAROXABAN [Concomitant]
     Active Substance: RIVAROXABAN
     Indication: Product used for unknown indication
     Dosage: 15 MG, FREQUENCY TIME: 1 DAY
     Route: 065
  4. BISOPROLOL [Concomitant]
     Active Substance: BISOPROLOL
     Indication: Product used for unknown indication
     Dosage: 10 MG, FREQUENCY TIME: 1 DAY
     Route: 065
  5. FUROSEMIDE (G) [Concomitant]
     Indication: Product used for unknown indication
     Dosage: 20 MG, FREQUENCY TIME: 12 HOURS
     Route: 065
  6. MEMANTINE (G) [Concomitant]
     Indication: Product used for unknown indication
     Dosage: 10 MG, FREQUENCY TIME: 1 DAY
     Route: 065
  7. MIRABEGRON [Concomitant]
     Active Substance: MIRABEGRON
     Indication: Product used for unknown indication
     Dosage: UNIT DOSE: 50 MG, FREQUENCY TIME: 1 DAY
  8. ELTROXIN (GENERIC) [Concomitant]
     Indication: Product used for unknown indication
     Dosage: 25 MG, FREQUENCY TIME: 1 DAY
     Route: 065
  9. PANTOPRAZOLE [Concomitant]
     Active Substance: PANTOPRAZOLE
     Indication: Product used for unknown indication
     Dosage: 40 MG, FREQUENCY TIME: 1 DAY
     Route: 065
  10. Etoflam [Concomitant]
     Indication: Product used for unknown indication
     Dosage: APPLY PRN/TDS,  5% W/W
  11. ESCITALOPRAM  (G) [Concomitant]
     Indication: Product used for unknown indication
     Dosage: 5 MG, FREQUENCY TIME: 1 DAY,
     Route: 065
  12. BETNOVATE [Concomitant]
     Active Substance: BETAMETHASONE
     Indication: Product used for unknown indication
     Dosage: FREQUENCY TIME: 12 HOURS
  13. ACETAMINOPHEN [Concomitant]
     Active Substance: ACETAMINOPHEN
     Indication: Product used for unknown indication
     Dosage: 1G PRN /TDS
  14. PROLIA [Concomitant]
     Active Substance: DENOSUMAB
     Indication: Product used for unknown indication
     Dosage: 60MG 6 MONTHLY
  15. ALLOPURINOL [Concomitant]
     Active Substance: ALLOPURINOL
     Indication: Product used for unknown indication
     Dosage: 300 MG, FREQUENCY TIME: 1 DAY
  16. QUETIAPINE [Concomitant]
     Active Substance: QUETIAPINE
     Indication: Product used for unknown indication
     Dosage: 12.5 TO 25MG

REACTIONS (7)
  - Blood bilirubin abnormal [Not Recovered/Not Resolved]
  - Jaundice [Not Recovered/Not Resolved]
  - Gamma-glutamyltransferase increased [Not Recovered/Not Resolved]
  - Faeces pale [Not Recovered/Not Resolved]
  - Blood alkaline phosphatase increased [Not Recovered/Not Resolved]
  - Chromaturia [Not Recovered/Not Resolved]
  - Alanine aminotransferase increased [Not Recovered/Not Resolved]

NARRATIVE: CASE EVENT DATE: 20230311
